FAERS Safety Report 12726809 (Version 9)
Quarter: 2018Q4

REPORT INFORMATION
  Report Type: Spontaneous
  Country: US (occurrence: US)
  Receive Date: 20160908
  Receipt Date: 20181217
  Transmission Date: 20190204
  Serious: No
  Sender: FDA-Public Use
  Company Number: US-ACTELION-A-US2016-141740

PATIENT
  Age: 82 Year
  Sex: Female

DRUGS (27)
  1. CHOLESTYRAMINE. [Concomitant]
     Active Substance: CHOLESTYRAMINE
  2. OPSUMIT [Suspect]
     Active Substance: MACITENTAN
     Indication: PULMONARY ARTERIAL HYPERTENSION
     Dosage: 10 MG, QD
     Route: 048
     Dates: start: 20140314
  3. DIAZEPAM. [Concomitant]
     Active Substance: DIAZEPAM
  4. METOLAZONE. [Concomitant]
     Active Substance: METOLAZONE
  5. TYLENOL [Concomitant]
     Active Substance: ACETAMINOPHEN
  6. BENADRYL [Concomitant]
     Active Substance: DIPHENHYDRAMINE HYDROCHLORIDE
  7. ACETAMINOPHEN. [Concomitant]
     Active Substance: ACETAMINOPHEN
  8. ELIQUIS [Concomitant]
     Active Substance: APIXABAN
  9. ESBRIET [Suspect]
     Active Substance: PIRFENIDONE
     Indication: PRODUCT USED FOR UNKNOWN INDICATION
     Dosage: 801 MG, TID
     Route: 065
  10. TYVASO [Concomitant]
     Active Substance: TREPROSTINIL
  11. DIOVAN [Concomitant]
     Active Substance: VALSARTAN
  12. AMLODIPINE [Concomitant]
     Active Substance: AMLODIPINE BESYLATE
  13. FUROSEMIDE. [Concomitant]
     Active Substance: FUROSEMIDE
  14. DETROL LA [Concomitant]
     Active Substance: TOLTERODINE TARTRATE
  15. HYDROCODONE [Concomitant]
     Active Substance: HYDROCODONE
  16. METAMUCIL [Concomitant]
     Active Substance: PLANTAGO SEED
  17. DICLOPHENAC [Concomitant]
     Active Substance: DICLOFENAC SODIUM
  18. ASPIRIN. [Concomitant]
     Active Substance: ASPIRIN
  19. SPIRONOLACTONE. [Concomitant]
     Active Substance: SPIRONOLACTONE
  20. ADCIRCA [Concomitant]
     Active Substance: TADALAFIL
  21. VITAMIN D3 [Concomitant]
     Active Substance: CHOLECALCIFEROL
  22. SERTRALINE [Concomitant]
     Active Substance: SERTRALINE HYDROCHLORIDE
  23. PREDNISONE. [Concomitant]
     Active Substance: PREDNISONE
  24. DYCLONINE [Concomitant]
     Active Substance: DYCLONINE
  25. CALCIUM [Concomitant]
     Active Substance: CALCIUM
  26. CHOLESTYRAMINE. [Concomitant]
     Active Substance: CHOLESTYRAMINE
  27. CRESTOR [Concomitant]
     Active Substance: ROSUVASTATIN CALCIUM

REACTIONS (15)
  - Chest pain [Unknown]
  - Oedema [Unknown]
  - Product dose omission [Not Recovered/Not Resolved]
  - Nasopharyngitis [Unknown]
  - Fluid retention [Unknown]
  - Cough [Unknown]
  - Peripheral swelling [Unknown]
  - Dental operation [Unknown]
  - Weight increased [Recovered/Resolved]
  - Diarrhoea [Unknown]
  - Hypotension [Unknown]
  - Dizziness [Unknown]
  - Dyspnoea [Unknown]
  - Nausea [Not Recovered/Not Resolved]
  - Memory impairment [Not Recovered/Not Resolved]

NARRATIVE: CASE EVENT DATE: 20160810
